FAERS Safety Report 5443425-8 (Version None)
Quarter: 2007Q3

REPORT INFORMATION
  Report Type: 
  Country: None (occurrence: None)
  Receive Date: 20070905
  Receipt Date: 20070830
  Transmission Date: 20080115
  Serious: Yes (Congenital Anomaly)
  Sender: FDA-Public Use
  Company Number: B0485227A

PATIENT
  Sex: Male
  Weight: 3.6 kg

DRUGS (4)
  1. PAROXETINE HCL [Suspect]
     Dosage: 20MG PER DAY
  2. TEGRETOL [Suspect]
     Indication: EPILEPSY
     Dosage: 200MG TWICE PER DAY
     Dates: end: 20070823
  3. URBANYL [Suspect]
     Indication: EPILEPSY
     Dosage: 15MG PER DAY
     Dates: end: 20070823
  4. EPIDURAL ANAESTHETIC (UNSPECIFIED) [Concomitant]
     Dates: start: 20070823, end: 20070823

REACTIONS (3)
  - DRUG EXPOSURE DURING PREGNANCY [None]
  - HYPOTONIA [None]
  - SYNDACTYLY [None]
